FAERS Safety Report 8141485 (Version 2)
Quarter: 2012Q4

REPORT INFORMATION
  Report Type: 
  Country: US (occurrence: US)
  Receive Date: 20110919
  Receipt Date: 20121107
  Transmission Date: 20130627
  Serious: Yes (Other)
  Sender: FDA-Public Use
  Company Number: US-US-EMD SERONO, INC.-7083008

PATIENT
  Sex: Female

DRUGS (6)
  1. SAIZEN [(SOMATROPIN (RDNA ORIGIN) FOR INJECTION)] [Suspect]
     Indication: HYPOPITUITARISM
     Dosage: 0.25 mg/kg/day
     Dates: end: 201008
  2. SYNTHROID (LEVOTHYROXINE) [Concomitant]
     Indication: HYPOTHYROIDISM
  3. KEPPRA (LEVETIRACETAM) [Concomitant]
     Indication: CONVULSION
  4. LUPRON (LEUPROLIDE) [Concomitant]
  5. DRISDOL (ERGOCALCIFEROL) [Concomitant]
  6. BACLOFEN PUMP [Concomitant]
     Indication: MUSCLE SPASTICITY

REACTIONS (1)
  - Scoliosis [Unknown]
